FAERS Safety Report 5307094-X (Version None)
Quarter: 2007Q2

REPORT INFORMATION
  Report Type: 
  Country: None (occurrence: None)
  Receive Date: 20070425
  Receipt Date: 20070417
  Transmission Date: 20071010
  Serious: Yes (Other)
  Sender: FDA-Public Use
  Company Number: PT-GENENTECH-240056

PATIENT
  Sex: Male
  Weight: 55 kg

DRUGS (5)
  1. RITUXIMAB [Suspect]
     Indication: B-CELL LYMPHOMA
     Route: 042
     Dates: start: 20060602
  2. CYCLOPHOSPHAMIDE [Concomitant]
     Indication: B-CELL LYMPHOMA
     Route: 042
     Dates: start: 20060602
  3. ADRIAMYCIN PFS [Concomitant]
     Indication: B-CELL LYMPHOMA
     Route: 042
     Dates: start: 20060602
  4. VINCRISTINE [Concomitant]
     Indication: B-CELL LYMPHOMA
     Route: 042
     Dates: start: 20060602
  5. PREDNISOLONE [Concomitant]
     Indication: B-CELL LYMPHOMA
     Route: 048
     Dates: start: 20060602

REACTIONS (1)
  - GASTRIC CANCER [None]
